FAERS Safety Report 5758882-7 (Version None)
Quarter: 2008Q2

REPORT INFORMATION
  Report Type: 
  Country: None (occurrence: None)
  Receive Date: 20080604
  Receipt Date: 20080526
  Transmission Date: 20081010
  Serious: Yes (Other)
  Sender: FDA-Public Use
  Company Number: PHRM2008FR01391

PATIENT
  Sex: Female

DRUGS (1)
  1. ZOMETA [Suspect]
     Dosage: 4 MG, QMO
     Route: 042
     Dates: start: 20031101, end: 20061101

REACTIONS (3)
  - FISTULA [None]
  - OSTEONECROSIS [None]
  - TOOTH ABSCESS [None]
